FAERS Safety Report 9268881 (Version 4)
Quarter: 2014Q1

REPORT INFORMATION
  Report Type: Report from Study
  Country: GB (occurrence: GB)
  Receive Date: 20130503
  Receipt Date: 20140331
  Transmission Date: 20141002
  Serious: Yes (Death)
  Sender: FDA-Public Use
  Company Number: GB-ROCHE-1220698

PATIENT
  Age: 86 Year
  Sex: Female

DRUGS (1)
  1. RANIBIZUMAB [Suspect]
     Indication: PRODUCT USED FOR UNKNOWN INDICATION
     Dosage: ON 05/SEP/2012, SHE RECEIVED MOST RECENT DOSE OF RANIBIZUMAB.
     Route: 050
     Dates: start: 20080101

REACTIONS (1)
  - Cardiac failure [Fatal]
